FAERS Safety Report 9374805 (Version 7)
Quarter: 2013Q3

REPORT INFORMATION
  Report Type: Spontaneous
  Country: BE (occurrence: BE)
  Receive Date: 20130628
  Receipt Date: 20130919
  Transmission Date: 20140515
  Serious: Yes (Death, Hospitalization, Other)
  Sender: FDA-Public Use
  Company Number: BE-AMGEN-BELSP2013045484

PATIENT
  Age: 50 Year
  Sex: Female
  Weight: 53.1 kg

DRUGS (15)
  1. XGEVA [Suspect]
     Indication: METASTASES TO BONE
     Dosage: 120 MG, Q4WK
     Route: 058
     Dates: start: 20130515
  2. FLUOROURACIL [Suspect]
     Indication: OESOPHAGEAL CARCINOMA
     Dosage: 400 MG/M2, UNK
     Route: 042
     Dates: start: 20130513
  3. CISPLATINUM [Suspect]
     Indication: OESOPHAGEAL CARCINOMA
     Dosage: 50 MG/M2, UNK
     Route: 042
     Dates: start: 20130513, end: 20130527
  4. GESTOFEME [Concomitant]
     Indication: LIVER DISORDER
     Dosage: 1 UNK, QD
     Route: 048
     Dates: end: 20130601
  5. LORATADINE [Concomitant]
     Dosage: 10 MG, QD
     Route: 048
     Dates: end: 20130601
  6. EMEND                              /01627301/ [Concomitant]
     Dosage: UNK
     Route: 048
     Dates: start: 20130513
  7. DEXAMETHASONE [Concomitant]
     Dosage: 12 MG, UNK
     Route: 048
     Dates: start: 20130513
  8. ZOFRAN                             /00955301/ [Concomitant]
     Dosage: 8 MG, QD
     Route: 042
     Dates: start: 20130513, end: 20130527
  9. XANAX [Concomitant]
     Indication: HEPATITIS
     Dosage: 0.5 MG, AS NECESSARY
     Route: 048
     Dates: start: 20130601
  10. CACIT D3 [Concomitant]
     Indication: METASTASES TO BONE
     Dosage: 1000/880, QD
     Route: 048
     Dates: start: 20130512, end: 20130601
  11. NILSTAT                            /00036501/ [Concomitant]
     Dosage: UNK UNK, QID
     Route: 048
     Dates: start: 20130512, end: 20130601
  12. MOVICOL                            /01625101/ [Concomitant]
     Dosage: UNK UNK, AS NECESSARY
     Route: 048
     Dates: start: 20130512, end: 20130601
  13. PRIMPERAN [Concomitant]
     Dosage: UNK UNK, AS NECESSARY
  14. ZOLPIDEM [Concomitant]
     Dosage: 10 MG, AS NECESSARY
     Route: 048
     Dates: end: 20130601
  15. PERIO AID [Concomitant]
     Dosage: UNK UNK, TID
     Route: 048
     Dates: start: 20130512, end: 20130601

REACTIONS (11)
  - Hepatic failure [Fatal]
  - Hepatic necrosis [Fatal]
  - Agitation [Fatal]
  - Brain oedema [Fatal]
  - Overdose [Fatal]
  - Hyperreflexia [Fatal]
  - Hyperventilation [Fatal]
  - Confusional state [Fatal]
  - Hepatic enzyme increased [Unknown]
  - Cholestasis [Unknown]
  - Sepsis [Unknown]
